FAERS Safety Report 9183903 (Version 1)
Quarter: 2012Q4

REPORT INFORMATION
  Report Type: 
  Country: US (occurrence: US)
  Receive Date: 20121030
  Receipt Date: 20121030
  Transmission Date: 20130627
  Serious: Yes (Other)
  Sender: FDA-Public Use
  Company Number: US-ELI_LILLY_AND_COMPANY-US201210006435

PATIENT
  Age: 78 Year
  Sex: Female

DRUGS (5)
  1. HUMALOG LISPRO [Suspect]
     Indication: DIABETES MELLITUS
     Dosage: 16 u, bid
     Dates: start: 199602
  2. HUMULIN NPH [Suspect]
     Indication: DIABETES MELLITUS
     Dosage: 44 u, each morning
     Dates: start: 199602
  3. HUMULIN NPH [Suspect]
     Dosage: 2 u, prn
  4. WARFARIN [Concomitant]
     Dosage: UNK, unknown
  5. PLAVIX [Concomitant]
     Dosage: UNK, unknown

REACTIONS (4)
  - Implantable defibrillator insertion [Unknown]
  - Blood glucose fluctuation [Unknown]
  - Blood glucose decreased [Unknown]
  - Injection site bruising [Unknown]
